FAERS Safety Report 13773007 (Version 2)
Quarter: 2017Q3

REPORT INFORMATION
  Report Type: Spontaneous
  Country: US (occurrence: US)
  Receive Date: 20170720
  Receipt Date: 20170814
  Transmission Date: 20171127
  Serious: Yes (Other)
  Sender: FDA-Public Use
  Company Number: US-SAOL THERAPEUTICS-2017SAO01215

PATIENT
  Age: 61 Year
  Sex: Male

DRUGS (2)
  1. BOTOX [Suspect]
     Active Substance: ONABOTULINUMTOXINA
     Dosage: UNK
     Dates: start: 20170629
  2. BACLOFEN. [Suspect]
     Active Substance: BACLOFEN
     Indication: MUSCLE SPASTICITY
     Dosage: 137.79 ?G, \DAY
     Route: 037
     Dates: start: 20170629

REACTIONS (6)
  - Device failure [Unknown]
  - Anal incontinence [Recovered/Resolved]
  - Device dislocation [Unknown]
  - Pneumonia [Unknown]
  - Atrial flutter [Unknown]
  - Muscle spasticity [Unknown]

NARRATIVE: CASE EVENT DATE: 20150212
